FAERS Safety Report 14029976 (Version 2)
Quarter: 2018Q1

REPORT INFORMATION
  Report Type: Spontaneous
  Country: US (occurrence: US)
  Receive Date: 20170930
  Receipt Date: 20180213
  Transmission Date: 20180508
  Serious: Yes (Other)
  Sender: FDA-Public Use
  Company Number: US-SA-2017SA148651

PATIENT
  Age: 48 Year
  Sex: Female
  Weight: 59.8 kg

DRUGS (1)
  1. AUBAGIO [Suspect]
     Active Substance: TERIFLUNOMIDE
     Indication: MULTIPLE SCLEROSIS
     Route: 048
     Dates: start: 201704

REACTIONS (3)
  - Erythema [Unknown]
  - Alopecia [Unknown]
  - Spinal disorder [Unknown]
